FAERS Safety Report 17560398 (Version 1)
Quarter: 2020Q1

REPORT INFORMATION
  Report Type: Spontaneous
  Country: US (occurrence: US)
  Receive Date: 20200312
  Receipt Date: 20200312
  Transmission Date: 20200409
  Serious: Yes (Hospitalization)
  Sender: FDA-Public Use
  Company Number: None

PATIENT
  Sex: Male
  Weight: 84.2 kg

DRUGS (22)
  1. CYCLOPHOSPHAMIDE. [Suspect]
     Active Substance: CYCLOPHOSPHAMIDE
  2. DOXORUBICIN [Suspect]
     Active Substance: DOXORUBICIN
  3. PANTOPRAZOLE [Concomitant]
     Active Substance: PANTOPRAZOLE
  4. VITAMIN D [Concomitant]
     Active Substance: VITAMIN D NOS
  5. ZOLPIDEM [Concomitant]
     Active Substance: ZOLPIDEM TARTRATE
  6. RAMPIRIL [Concomitant]
     Active Substance: RAMIPRIL
  7. ETOPOSIDE (VP-16) [Suspect]
     Active Substance: ETOPOSIDE
  8. ALLOPURINOL. [Concomitant]
     Active Substance: ALLOPURINOL
  9. CARVEDILOL. [Concomitant]
     Active Substance: CARVEDILOL
  10. RO [Concomitant]
  11. VALACYCLOVIR [Concomitant]
     Active Substance: VALACYCLOVIR HYDROCHLORIDE
  12. (MOAB C2B8 ANTI CD20, CHIMERIC) [Concomitant]
  13. HYDROCHLOROTHIAZIDE. [Concomitant]
     Active Substance: HYDROCHLOROTHIAZIDE
  14. OLANZAPINE. [Concomitant]
     Active Substance: OLANZAPINE
  15. ASPIRIN. [Concomitant]
     Active Substance: ASPIRIN
  16. FISH OIL [Concomitant]
     Active Substance: FISH OIL
  17. METFORMIN [Concomitant]
     Active Substance: METFORMIN HYDROCHLORIDE
  18. SULFAMETHOXAZOLE-TRIMETHOPRIM [Concomitant]
     Active Substance: SULFAMETHOXAZOLE\TRIMETHOPRIM
  19. VINCRISTINE SULFATE. [Concomitant]
     Active Substance: VINCRISTINE SULFATE
  20. PREDNISONE. [Concomitant]
     Active Substance: PREDNISONE
  21. NIACIN. [Concomitant]
     Active Substance: NIACIN
  22. ONDANSETRON [Concomitant]
     Active Substance: ONDANSETRON

REACTIONS (6)
  - White blood cell count decreased [None]
  - Lymphadenitis [None]
  - Blood pressure systolic increased [None]
  - Febrile neutropenia [None]
  - Blood glucose increased [None]
  - Platelet count decreased [None]

NARRATIVE: CASE EVENT DATE: 20200308
